FAERS Safety Report 5323479-X (Version None)
Quarter: 2007Q2

REPORT INFORMATION
  Report Type: 
  Country: None (occurrence: None)
  Receive Date: 20070514
  Receipt Date: 20070508
  Transmission Date: 20071010
  Serious: Yes (Hospitalization)
  Sender: FDA-Public Use
  Company Number: PHNU2007DE00612

PATIENT
  Age: 51 Year
  Sex: Male

DRUGS (7)
  1. GLEEVEC [Suspect]
     Indication: GASTROINTESTINAL STROMAL TUMOUR
     Dosage: 400 MG, QD
     Route: 048
     Dates: start: 20061001
  2. ACETYLSALICYLIC ACID SRT [Concomitant]
     Dosage: 100 MG, QD
     Route: 048
  3. PLAVIX [Concomitant]
     Dosage: 75 MG, QD
     Route: 048
  4. PANTOZOL [Concomitant]
     Dosage: 40 MG, BID
     Route: 048
  5. SIMVAHEXAL [Concomitant]
     Dosage: 40 MG, QD
     Route: 048
  6. RAMIPRIL [Concomitant]
     Dosage: 2.5 MG, QD
     Route: 048
  7. BISOPROLOL FUMARATE [Concomitant]
     Dosage: 5 MG, QD
     Route: 048

REACTIONS (13)
  - BIOPSY COLON ABNORMAL [None]
  - BLOOD CREATININE INCREASED [None]
  - COLITIS ULCERATIVE [None]
  - COLONOSCOPY ABNORMAL [None]
  - DEHYDRATION [None]
  - DIARRHOEA [None]
  - ENTEROCOLITIS BACTERIAL [None]
  - FAECES DISCOLOURED [None]
  - HEPATIC CYST [None]
  - OEDEMA MUCOSAL [None]
  - RENAL CYST [None]
  - RENAL FAILURE [None]
  - ULTRASOUND ABDOMEN ABNORMAL [None]
